FAERS Safety Report 7134851-X (Version None)
Quarter: 2010Q4

REPORT INFORMATION
  Report Type: 
  Country: None (occurrence: None)
  Receive Date: 20101203
  Receipt Date: 20101130
  Transmission Date: 20110411
  Serious: Yes (Death, Hospitalization, Other)
  Sender: FDA-Public Use
  Company Number: US-CELGENEUS-163-21880-10090963

PATIENT
  Sex: Male

DRUGS (2)
  1. REVLIMID [Suspect]
     Route: 048
     Dates: start: 20100810, end: 20100901
  2. REVLIMID [Suspect]
     Route: 048
     Dates: start: 20100901, end: 20101103

REACTIONS (5)
  - ACUTE MYELOID LEUKAEMIA [None]
  - DEATH [None]
  - FEBRILE NEUTROPENIA [None]
  - MYELODYSPLASTIC SYNDROME TRANSFORMATION [None]
  - PLATELET COUNT DECREASED [None]
